FAERS Safety Report 4476778-8 (Version None)
Quarter: 2004Q4

REPORT INFORMATION
  Report Type: 
  Country: None (occurrence: None)
  Receive Date: 20041013
  Receipt Date: 20040930
  Transmission Date: 20050328
  Serious: Yes (Hospitalization)
  Sender: FDA-Public Use
  Company Number: 2004-BP-08924BP

PATIENT
  Age: 81 Year
  Sex: Female

DRUGS (5)
  1. MOBIC [Suspect]
     Indication: LOCALISED OSTEOARTHRITIS
     Dosage: 7.5 MG (7.5 MG), PO
     Route: 048
     Dates: end: 20040301
  2. MOBIC [Suspect]
     Indication: LOCALISED OSTEOARTHRITIS
     Dosage: 7.5 MG (7.5 MG), PO
     Route: 048
     Dates: start: 20040601, end: 20040925
  3. RYTHMARONE (AMIODARONE HYDROCHLORIDE) [Concomitant]
  4. ACTONEL [Concomitant]
  5. PREMARIN [Concomitant]

REACTIONS (3)
  - ATRIAL FIBRILLATION [None]
  - GASTRIC ULCER HAEMORRHAGE [None]
  - HAEMOGLOBIN DECREASED [None]
